FAERS Safety Report 12529681 (Version 2)
Quarter: 2016Q3

REPORT INFORMATION
  Report Type: Spontaneous
  Country: US (occurrence: US)
  Receive Date: 20160706
  Receipt Date: 20160922
  Transmission Date: 20161109
  Serious: Yes (Death)
  Sender: FDA-Public Use
  Company Number: US-009507513-1606USA014822

PATIENT
  Age: 71 Year
  Sex: Female

DRUGS (5)
  1. COMPAZINE [Concomitant]
     Active Substance: PROCHLORPERAZINE MALEATE
  2. NORCO [Concomitant]
     Active Substance: ACETAMINOPHEN\HYDROCODONE BITARTRATE
  3. VERAPAMIL [Concomitant]
     Active Substance: VERAPAMIL HYDROCHLORIDE
  4. LOVENOX [Concomitant]
     Active Substance: ENOXAPARIN SODIUM
  5. KEYTRUDA [Suspect]
     Active Substance: PEMBROLIZUMAB
     Indication: LUNG NEOPLASM MALIGNANT
     Dosage: 135 MG, Q3W
     Route: 042
     Dates: start: 20160503

REACTIONS (3)
  - Skin warm [Not Recovered/Not Resolved]
  - Rash papular [Not Recovered/Not Resolved]
  - Adverse event [Fatal]

NARRATIVE: CASE EVENT DATE: 2016
